FAERS Safety Report 20948378 (Version 1)
Quarter: 2022Q2

REPORT INFORMATION
  Report Type: Spontaneous
  Country: CA (occurrence: CA)
  Receive Date: 20220611
  Receipt Date: 20220611
  Transmission Date: 20220721
  Serious: Yes (Other)
  Sender: FDA-Public Use
  Company Number: CA-TEVA-2022-CA-2043357

PATIENT
  Age: 47 Year
  Sex: Female

DRUGS (41)
  1. ALENDRONATE SODIUM [Suspect]
     Active Substance: ALENDRONATE SODIUM
     Indication: Product used for unknown indication
     Route: 065
  2. CELECOXIB [Suspect]
     Active Substance: CELECOXIB
     Indication: Product used for unknown indication
     Route: 065
  3. CEPHALEXIN [Suspect]
     Active Substance: CEPHALEXIN
     Indication: Product used for unknown indication
     Route: 065
  4. CIPROFLOXACIN [Suspect]
     Active Substance: CIPROFLOXACIN
     Route: 065
  5. CLARITHROMYCIN [Suspect]
     Active Substance: CLARITHROMYCIN
     Indication: Product used for unknown indication
     Route: 065
  6. CLINDAMYCIN [Suspect]
     Active Substance: CLINDAMYCIN
     Indication: Product used for unknown indication
     Route: 065
  7. CODEINE SULFATE [Suspect]
     Active Substance: CODEINE SULFATE
     Indication: Product used for unknown indication
     Route: 065
  8. GLICLAZIDE [Suspect]
     Active Substance: GLICLAZIDE
     Indication: Product used for unknown indication
     Route: 065
  9. HYDROCHLOROTHIAZIDE [Suspect]
     Active Substance: HYDROCHLOROTHIAZIDE
     Indication: Product used for unknown indication
     Route: 065
  10. LEVOFLOXACIN [Suspect]
     Active Substance: LEVOFLOXACIN
     Indication: Product used for unknown indication
     Route: 065
  11. LOSARTAN [Suspect]
     Active Substance: LOSARTAN
     Indication: Product used for unknown indication
     Route: 065
  12. METHOTREXATE [Suspect]
     Active Substance: METHOTREXATE
     Indication: Rheumatoid arthritis
     Route: 058
  13. METOPROLOL TARTRATE [Suspect]
     Active Substance: METOPROLOL TARTRATE
     Indication: Product used for unknown indication
     Route: 065
  14. MOXIFLOXACIN HYDROCHLORIDE [Suspect]
     Active Substance: MOXIFLOXACIN HYDROCHLORIDE
     Indication: Product used for unknown indication
     Route: 065
  15. PANTOPRAZOLE MAGNESIUM [Suspect]
     Active Substance: PANTOPRAZOLE MAGNESIUM
     Indication: Product used for unknown indication
     Route: 065
  16. RABEPRAZOLE SODIUM [Suspect]
     Active Substance: RABEPRAZOLE SODIUM
     Indication: Product used for unknown indication
     Route: 065
  17. ARAVA [Suspect]
     Active Substance: LEFLUNOMIDE
     Indication: Rheumatoid arthritis
     Route: 065
  18. CLARITHROMYCIN [Suspect]
     Active Substance: CLARITHROMYCIN
     Indication: Product used for unknown indication
     Route: 042
  19. ENALAPRIL [Suspect]
     Active Substance: ENALAPRIL
     Indication: Product used for unknown indication
     Route: 065
  20. ENALAPRIL [Suspect]
     Active Substance: ENALAPRIL
     Route: 065
  21. HYDRALAZINE HYDROCHLORIDE [Suspect]
     Active Substance: HYDRALAZINE HYDROCHLORIDE
     Indication: Product used for unknown indication
     Route: 065
  22. HYDROXYCHLOROQUINE SULFATE [Suspect]
     Active Substance: HYDROXYCHLOROQUINE SULFATE
     Route: 065
  23. ISONIAZID [Suspect]
     Active Substance: ISONIAZID
     Indication: Product used for unknown indication
     Route: 065
  24. ORENCIA [Suspect]
     Active Substance: ABATACEPT
     Indication: Product used for unknown indication
     Route: 065
  25. PENICILLIN G [Suspect]
     Active Substance: PENICILLIN G
     Indication: Product used for unknown indication
     Route: 065
  26. PLAQUENIL [Suspect]
     Active Substance: HYDROXYCHLOROQUINE SULFATE
     Indication: Product used for unknown indication
     Route: 065
  27. PANTOPRAZOLE MAGNESIUM [Suspect]
     Active Substance: PANTOPRAZOLE MAGNESIUM
     Indication: Product used for unknown indication
     Route: 065
  28. XELJANZ [Suspect]
     Active Substance: TOFACITINIB CITRATE
     Indication: Rheumatoid arthritis
     Dosage: 100 MILLIGRAM DAILY;
     Route: 048
  29. ATENOLOL [Concomitant]
     Active Substance: ATENOLOL
     Route: 065
  30. CIPRO [Concomitant]
     Active Substance: CIPROFLOXACIN HYDROCHLORIDE
     Route: 065
  31. COLCHICINE [Concomitant]
     Active Substance: COLCHICINE
     Route: 065
  32. PERINDOPRIL ERBUMINE [Concomitant]
     Active Substance: PERINDOPRIL ERBUMINE
     Route: 065
  33. ESOMEPRAZOLE [Concomitant]
     Active Substance: ESOMEPRAZOLE
     Route: 065
  34. GOLD [Concomitant]
     Active Substance: GOLD
     Route: 065
  35. HYDROXYCHLOROQUINE [Concomitant]
     Active Substance: HYDROXYCHLOROQUINE
     Route: 065
  36. IRON SUCROSE [Concomitant]
     Active Substance: IRON SUCROSE
     Route: 065
  37. LEUCOVORIN CALCIUM [Concomitant]
     Active Substance: LEUCOVORIN CALCIUM
     Route: 065
  38. PATIROMER [Concomitant]
     Active Substance: PATIROMER
     Route: 065
  39. PREDNISONE [Concomitant]
     Active Substance: PREDNISONE
     Dosage: 8.5 MILLIGRAM DAILY;
     Route: 065
  40. RANITIDINE [Concomitant]
     Active Substance: RANITIDINE
  41. SACCHARATED IRON OXIDE [Concomitant]
     Active Substance: IRON SUCROSE

REACTIONS (23)
  - Abdominal discomfort [Unknown]
  - Abdominal pain upper [Unknown]
  - Arthralgia [Unknown]
  - Cardiac failure congestive [Unknown]
  - Contraindicated product administered [Unknown]
  - Cough [Unknown]
  - Diarrhoea [Unknown]
  - Drug hypersensitivity [Unknown]
  - Drug ineffective [Unknown]
  - Drug intolerance [Unknown]
  - Dyspnoea [Unknown]
  - Gastric disorder [Unknown]
  - Headache [Unknown]
  - Hepatic steatosis [Unknown]
  - Hypertension [Unknown]
  - Liver disorder [Unknown]
  - Loss of employment [Unknown]
  - Malaise [Unknown]
  - Nausea [Unknown]
  - Off label use [Unknown]
  - Product use issue [Unknown]
  - Rash [Unknown]
  - Therapeutic product effect decreased [Unknown]
